FAERS Safety Report 20101969 (Version 1)
Quarter: 2021Q4

REPORT INFORMATION
  Report Type: Spontaneous
  Country: US (occurrence: US)
  Receive Date: 20211123
  Receipt Date: 20211123
  Transmission Date: 20220303
  Serious: No
  Sender: FDA-Public Use
  Company Number: US-JNJFOC-20211101075

PATIENT
  Age: 40 Year
  Sex: Female
  Weight: 72.57 kg

DRUGS (3)
  1. SUDAFED [Interacting]
     Active Substance: PSEUDOEPHEDRINE HYDROCHLORIDE
     Indication: Rhinorrhoea
     Dosage: SHE JUST ONLY TOOK, ONE.  UNABLE TO PROVIDE DOSE/STRENGTH
     Route: 065
     Dates: start: 20211012
  2. SUDAFED [Interacting]
     Active Substance: PSEUDOEPHEDRINE HYDROCHLORIDE
     Indication: Nasal congestion
  3. IBRANCE [Concomitant]
     Active Substance: PALBOCICLIB
     Indication: Breast cancer
     Dosage: 125MG, 1 CAPSULE BY MOUTH ONCE DAILY FOR 21 DAYS AND 7 DAYS OFF
     Route: 048
     Dates: start: 20210930

REACTIONS (1)
  - Drug interaction [Unknown]

NARRATIVE: CASE EVENT DATE: 20211012
